FAERS Safety Report 9701179 (Version 1)
Quarter: 2013Q4

REPORT INFORMATION
  Report Type: Spontaneous
  Country: US (occurrence: US)
  Receive Date: 20131121
  Receipt Date: 20131121
  Transmission Date: 20140711
  Serious: No
  Sender: FDA-Public Use
  Company Number: US-GILEAD-2008-0016005

PATIENT
  Sex: Female
  Weight: 49.89 kg

DRUGS (8)
  1. LETAIRIS [Suspect]
     Indication: PULMONARY ARTERIAL HYPERTENSION
     Route: 048
     Dates: start: 20071102
  2. ALDACTONE [Concomitant]
     Route: 048
  3. LASIX [Concomitant]
     Route: 048
  4. REVATIO [Concomitant]
     Route: 048
  5. K-DUR [Concomitant]
     Route: 048
  6. LANOXIN [Concomitant]
     Dosage: 6 X W
     Route: 048
  7. ASPIRIN [Concomitant]
     Route: 048
  8. ZAROXOLYN [Concomitant]
     Route: 048

REACTIONS (1)
  - Local swelling [Unknown]
